FAERS Safety Report 19767139 (Version 1)
Quarter: 2021Q3

REPORT INFORMATION
  Report Type: Spontaneous
  Country: US (occurrence: US)
  Receive Date: 20210830
  Receipt Date: 20210830
  Transmission Date: 20211014
  Serious: Yes (Disabling)
  Sender: FDA-Public Use
  Company Number: None

PATIENT
  Age: 71 Year
  Sex: Male
  Weight: 70.65 kg

DRUGS (3)
  1. LUPRON DEPOT [Suspect]
     Active Substance: LEUPROLIDE ACETATE
     Indication: PROSTATE CANCER
     Dosage: ?QUANTITY:1 INJECTION(S);?OTHER FREQUENCY:ONE TIME ONLY;?
     Route: 042
  2. SUMITRIPTAN [Concomitant]
     Active Substance: SUMATRIPTAN
  3. MULTIVITAMINS [Concomitant]
     Active Substance: VITAMINS

REACTIONS (18)
  - Vertigo [None]
  - Fatigue [None]
  - Dyspnoea [None]
  - Erectile dysfunction [None]
  - Hot flush [None]
  - Speech disorder [None]
  - Back pain [None]
  - Feeling abnormal [None]
  - Feeling cold [None]
  - Secretion discharge [None]
  - Throat irritation [None]
  - General physical health deterioration [None]
  - Dizziness [None]
  - Influenza like illness [None]
  - Neck pain [None]
  - Inguinal hernia [None]
  - Cough [None]
  - Body temperature decreased [None]

NARRATIVE: CASE EVENT DATE: 20150715
